FAERS Safety Report 5948991-1 (Version None)
Quarter: 2008Q4

REPORT INFORMATION
  Report Type: 
  Country: None (occurrence: None)
  Receive Date: 20081111
  Receipt Date: 20081029
  Transmission Date: 20090506
  Serious: Yes (Hospitalization, Other)
  Sender: FDA-Public Use
  Company Number: US-ELI_LILLY_AND_COMPANY-US200809006106

PATIENT
  Sex: Male

DRUGS (10)
  1. BYETTA [Suspect]
     Indication: TYPE 2 DIABETES MELLITUS
     Dosage: 5 UG, 2/D
     Route: 058
     Dates: start: 20080128
  2. BYETTA [Suspect]
     Dosage: 10 UG, 2/D
     Route: 065
     Dates: start: 20080218
  3. METFORMIN HCL [Concomitant]
     Indication: TYPE 2 DIABETES MELLITUS
     Dosage: 1000 MG, 2/D
     Route: 048
  4. TRICOR [Concomitant]
     Indication: BLOOD TRIGLYCERIDES
     Dosage: 145 MG, DAILY (1/D)
     Route: 065
  5. VYTORIN [Concomitant]
     Indication: HYPERLIPIDAEMIA
     Dosage: UNK, DAILY (1/D)
     Route: 065
  6. ZESTRIL [Concomitant]
     Indication: HYPERTENSION
     Dosage: 20 MG, DAILY (1/D)
     Route: 065
  7. LOPRESSOR [Concomitant]
     Indication: HYPERTENSION
     Dosage: 50 MG, 2/D
     Route: 065
  8. LASIX [Concomitant]
     Indication: HYPERTENSION
     Dosage: 40 MG, DAILY (1/D)
     Route: 065
  9. CARDIZEM [Concomitant]
     Indication: HYPERTENSION
     Dosage: 240 MG, DAILY (1/D)
     Route: 065
  10. PAXIL [Concomitant]
     Indication: DEPRESSION
     Dosage: 10 MG, DAILY (1/D)
     Route: 065

REACTIONS (2)
  - PANCREATITIS [None]
  - WEIGHT DECREASED [None]
